FAERS Safety Report 21874839 (Version 1)
Quarter: 2023Q1

REPORT INFORMATION
  Report Type: Spontaneous
  Country: DE (occurrence: None)
  Receive Date: 20230117
  Receipt Date: 20230117
  Transmission Date: 20230418
  Serious: Yes (Hospitalization, Disabling, Other)
  Sender: FDA-Public Use
  Company Number: 2019SE51179

PATIENT
  Age: 58 Year
  Sex: Male

DRUGS (37)
  1. METOPROLOL SUCCINATE [Suspect]
     Active Substance: METOPROLOL SUCCINATE
     Indication: Product used for unknown indication
     Dosage: UNK
     Route: 048
     Dates: start: 201202, end: 2013
  2. METOPROLOL SUCCINATE [Suspect]
     Active Substance: METOPROLOL SUCCINATE
     Indication: Product used for unknown indication
     Dosage: UNK
     Route: 048
     Dates: start: 201302, end: 2014
  3. OMEPRAZOLE [Suspect]
     Active Substance: OMEPRAZOLE
     Indication: Product used for unknown indication
     Dosage: UNK
     Route: 048
     Dates: start: 201307, end: 2013
  4. CANDESARTAN CILEXETIL [Suspect]
     Active Substance: CANDESARTAN CILEXETIL
     Indication: Product used for unknown indication
     Dosage: UNK, TABLET
     Route: 048
     Dates: start: 201409, end: 2014
  5. ALLOPURINOL [Suspect]
     Active Substance: ALLOPURINOL
     Indication: Product used for unknown indication
     Dosage: UNK (ALLOPURINOL AL), TABLET
     Route: 048
     Dates: start: 201307, end: 2016
  6. ALLOPURINOL [Suspect]
     Active Substance: ALLOPURINOL
     Indication: Product used for unknown indication
     Dosage: UNK (ALLOPURINOL HEUMANN), TABLET
     Route: 048
     Dates: start: 201311, end: 2014
  7. ALLOPURINOL [Suspect]
     Active Substance: ALLOPURINOL
     Indication: Product used for unknown indication
     Dosage: UNK (HEUMANN), TABLET
     Route: 048
     Dates: start: 201411, end: 2015
  8. ALLOPURINOL [Suspect]
     Active Substance: ALLOPURINOL
     Indication: Product used for unknown indication
     Dosage: UNK (ALLOPURINOL ABZ), TABLET
     Route: 048
     Dates: start: 201512, end: 2017
  9. ALLOPURINOL [Suspect]
     Active Substance: ALLOPURINOL
     Indication: Product used for unknown indication
     Dosage: UNK (ALLOPURINOL AL), TABLET
     Route: 048
     Dates: start: 201303, end: 2016
  10. TORSEMIDE [Suspect]
     Active Substance: TORSEMIDE
     Indication: Product used for unknown indication
     Dosage: UNK (TORASEMID STADA), TABLET
     Route: 048
     Dates: start: 201409, end: 2014
  11. TORSEMIDE [Suspect]
     Active Substance: TORSEMIDE
     Indication: Product used for unknown indication
     Dosage: UNK (TORASEMID AL), TABLET
     Route: 048
     Dates: start: 201505, end: 2017
  12. TORSEMIDE [Suspect]
     Active Substance: TORSEMIDE
     Indication: Product used for unknown indication
     Dosage: UNK (TORASEMID ABZ), TABLET
     Route: 048
     Dates: start: 201405, end: 2014
  13. PANTOPRAZOLE [Suspect]
     Active Substance: PANTOPRAZOLE
     Indication: Product used for unknown indication
     Dosage: UNK (PANTOPRAZOL 1A PHARMA)
     Route: 065
     Dates: start: 201207, end: 2014
  14. PANTOPRAZOLE [Suspect]
     Active Substance: PANTOPRAZOLE
     Indication: Product used for unknown indication
     Dosage: UNK (PANTOPRAZOLE TAD)
     Route: 065
     Dates: start: 201601, end: 2016
  15. DOXYCYCLINE [Suspect]
     Active Substance: DOXYCYCLINE
     Indication: Product used for unknown indication
     Dosage: UNK
     Route: 065
     Dates: start: 201205, end: 2012
  16. AMLODIPINE BESYLATE\OLMESARTAN MEDOXOMIL [Suspect]
     Active Substance: AMLODIPINE BESYLATE\OLMESARTAN MEDOXOMIL
     Indication: Product used for unknown indication
     Dosage: UNK
     Route: 065
     Dates: start: 201202, end: 2013
  17. PREDNISOLONE [Suspect]
     Active Substance: PREDNISOLONE
     Indication: Product used for unknown indication
     Dosage: UNK (PREDNISOLON AL), TABLET
     Route: 065
     Dates: start: 201309, end: 2013
  18. PREDNISOLONE [Suspect]
     Active Substance: PREDNISOLONE
     Indication: Product used for unknown indication
     Dosage: UNK (PREDNISOLON ACIS), TABLET
     Route: 065
     Dates: start: 201311, end: 2013
  19. IBUPROFEN [Suspect]
     Active Substance: IBUPROFEN
     Indication: Product used for unknown indication
     Dosage: UNK, FILM-COATED TABLET
     Route: 048
     Dates: start: 201304, end: 2016
  20. MOMETASONE [Suspect]
     Active Substance: MOMETASONE
     Indication: Product used for unknown indication
     Dosage: UNK
     Route: 065
     Dates: start: 201610, end: 2016
  21. OLMESARTAN MEDOXOMIL [Suspect]
     Active Substance: OLMESARTAN MEDOXOMIL
     Indication: Product used for unknown indication
     Dosage: UNK, FILM-COATED TABLET
     Route: 065
     Dates: start: 201402, end: 2014
  22. NALOXONE HYDROCHLORIDE\TILIDINE HYDROCHLORIDE [Suspect]
     Active Substance: NALOXONE HYDROCHLORIDE\TILIDINE HYDROCHLORIDE
     Indication: Product used for unknown indication
     Dosage: UNK
     Route: 065
     Dates: start: 201409, end: 2016
  23. AMOXICILLIN [Suspect]
     Active Substance: AMOXICILLIN
     Indication: Product used for unknown indication
     Dosage: UNK (AMOXILLIN RATIOPHARMA)
     Route: 065
     Dates: start: 201402, end: 2014
  24. AMOXICILLIN [Suspect]
     Active Substance: AMOXICILLIN
     Indication: Product used for unknown indication
     Dosage: UNK (AMOXILLIN AL)
     Route: 065
     Dates: start: 201305, end: 2013
  25. NASONEX [Suspect]
     Active Substance: MOMETASONE FUROATE
     Indication: Product used for unknown indication
     Dosage: UNK
     Route: 065
     Dates: start: 201205, end: 2013
  26. METAMIZOLE SODIUM [Suspect]
     Active Substance: METAMIZOLE SODIUM
     Indication: Product used for unknown indication
     Dosage: UNK, FILM-COATED TABLET
     Route: 065
     Dates: start: 201309, end: 2017
  27. IBU [Suspect]
     Active Substance: IBUPROFEN
     Indication: Product used for unknown indication
     Dosage: UNK, FILM-COATED TABLET
     Route: 065
     Dates: start: 201602, end: 2017
  28. DEXAMETHASONE\GENTAMICIN SULFATE [Suspect]
     Active Substance: DEXAMETHASONE\GENTAMICIN SULFATE
     Indication: Product used for unknown indication
     Dosage: UNK
     Route: 065
     Dates: start: 201212, end: 2013
  29. OLMESARTAN MEDOXOMIL [Suspect]
     Active Substance: OLMESARTAN MEDOXOMIL
     Indication: Product used for unknown indication
     Dosage: UNK, FILM-COATED TABLET
     Route: 065
     Dates: start: 201311, end: 2014
  30. METAMIZOL [Suspect]
     Active Substance: METAMIZOLE SODIUM
     Indication: Product used for unknown indication
     Dosage: UNK
     Route: 065
     Dates: start: 201309, end: 2017
  31. METOCLOPRAMIDE HYDROCHLORIDE [Suspect]
     Active Substance: METOCLOPRAMIDE HYDROCHLORIDE
     Indication: Product used for unknown indication
     Dosage: UNK
     Route: 065
     Dates: start: 201306, end: 2013
  32. VALSARTAN [Suspect]
     Active Substance: VALSARTAN
     Indication: Product used for unknown indication
     Dosage: UNK (1A PHARMA), FILM COATED TABLET
     Route: 065
     Dates: start: 201501, end: 2017
  33. DICLOFENAC [Suspect]
     Active Substance: DICLOFENAC
     Indication: Product used for unknown indication
     Dosage: UNK
     Route: 065
     Dates: start: 201203, end: 2012
  34. CELECOXIB [Suspect]
     Active Substance: CELECOXIB
     Indication: Product used for unknown indication
     Dosage: UNK, CAPSULE HARD
     Route: 065
     Dates: start: 201501, end: 2016
  35. MOXONIDINE [Suspect]
     Active Substance: MOXONIDINE
     Indication: Product used for unknown indication
     Dosage: UNK (MOXONIDIN AAA PHARMA)
     Route: 048
     Dates: start: 201509, end: 2017
  36. MOXONIDINE [Suspect]
     Active Substance: MOXONIDINE
     Indication: Product used for unknown indication
     Dosage: UNK (MOXONIDIN AL)
     Route: 048
     Dates: start: 201603, end: 2016
  37. MOXONIDINE [Suspect]
     Active Substance: MOXONIDINE
     Indication: Product used for unknown indication
     Dosage: UNK (MOXONIDIN HEU NET)
     Route: 048
     Dates: start: 201311, end: 2015

REACTIONS (1)
  - Papillary renal cell carcinoma [Unknown]

NARRATIVE: CASE EVENT DATE: 20170501
